FAERS Safety Report 24184952 (Version 1)
Quarter: 2024Q3

REPORT INFORMATION
  Report Type: Spontaneous
  Country: US (occurrence: None)
  Receive Date: 20240807
  Receipt Date: 20240807
  Transmission Date: 20241017
  Serious: Yes (Other)
  Sender: ASTRAZENECA
  Company Number: 2024A174030

PATIENT
  Age: 70 Year
  Sex: Male

DRUGS (2)
  1. IMJUDO [Suspect]
     Active Substance: TREMELIMUMAB\TREMELIMUMAB-ACTL
     Indication: Hepatocellular carcinoma
     Dosage: 300.0MG ONCE/SINGLE ADMINISTRATION
     Route: 042
  2. IMFINZI [Concomitant]
     Active Substance: DURVALUMAB
     Indication: Hepatocellular carcinoma
     Route: 042

REACTIONS (1)
  - Ascites [Not Recovered/Not Resolved]
